FAERS Safety Report 25210129 (Version 2)
Quarter: 2025Q2

REPORT INFORMATION
  Report Type: Spontaneous
  Country: CN (occurrence: CN)
  Receive Date: 20250417
  Receipt Date: 20250630
  Transmission Date: 20250716
  Serious: Yes (Hospitalization, Other)
  Sender: PFIZER
  Company Number: CN-PFIZER INC-PV202500042873

PATIENT
  Age: 17 Year
  Sex: Male

DRUGS (7)
  1. XYNTHA [Suspect]
     Active Substance: MOROCTOCOG ALFA
     Dates: start: 20220527
  2. XYNTHA [Suspect]
     Active Substance: MOROCTOCOG ALFA
     Dosage: 1000 IU, ALTERNATE DAY (QOD)
     Route: 042
     Dates: start: 20230825
  3. XYNTHA [Suspect]
     Active Substance: MOROCTOCOG ALFA
     Dosage: 1000 IU, ALTERNATE DAY (QOD)
     Route: 042
     Dates: start: 20231213
  4. XYNTHA [Suspect]
     Active Substance: MOROCTOCOG ALFA
     Dosage: 500 IU, ALTERNATE DAY (QOD)
     Route: 042
     Dates: start: 20240515
  5. XYNTHA [Suspect]
     Active Substance: MOROCTOCOG ALFA
     Dosage: 1000 IU, ALTERNATE DAY (QOD)
     Route: 042
     Dates: start: 20240612
  6. XYNTHA [Suspect]
     Active Substance: MOROCTOCOG ALFA
     Dosage: 1000 IU, ALTERNATE DAY (QOD)
     Route: 042
     Dates: start: 20241108
  7. XYNTHA [Suspect]
     Active Substance: MOROCTOCOG ALFA
     Route: 042
     Dates: start: 20250328

REACTIONS (8)
  - Coma [Recovering/Resolving]
  - Coagulation factor decreased [Unknown]
  - Epilepsy [Unknown]
  - Infection [Unknown]
  - Hydrocephalus [Unknown]
  - Cerebral haematoma [Unknown]
  - Decompressive craniectomy [Unknown]
  - Tracheostomy [Recovered/Resolved]

NARRATIVE: CASE EVENT DATE: 20250101
